FAERS Safety Report 9477228 (Version 1)
Quarter: 2013Q3

REPORT INFORMATION
  Report Type: Spontaneous
  Country: JP (occurrence: JP)
  Receive Date: 20130826
  Receipt Date: 20130826
  Transmission Date: 20140515
  Serious: Yes (Death)
  Sender: FDA-Public Use
  Company Number: JP-MYLANLABS-2013S1018256

PATIENT
  Age: 8 Decade
  Sex: Female

DRUGS (10)
  1. IGURATIMOD [Suspect]
     Indication: RHEUMATOID ARTHRITIS
     Dosage: 25 MG/DAY
     Route: 048
  2. IGURATIMOD [Interacting]
     Indication: RHEUMATOID ARTHRITIS
     Dosage: 50 MG/DAY
     Route: 048
  3. WARFARIN [Interacting]
     Dosage: 3 MG/DAY
     Route: 065
  4. SULFASALAZINE [Concomitant]
     Indication: RHEUMATOID ARTHRITIS
     Route: 065
  5. TACROLIMUS [Concomitant]
     Indication: RHEUMATOID ARTHRITIS
     Route: 065
  6. PREDNISOLONE [Concomitant]
     Indication: RHEUMATOID ARTHRITIS
     Route: 065
  7. TEPRENONE [Concomitant]
     Route: 065
  8. SULINDAC [Concomitant]
     Route: 065
  9. ZOLPIDEM [Concomitant]
     Route: 065
  10. RISEDRONIC ACID [Concomitant]
     Route: 065

REACTIONS (3)
  - Prothrombin time prolonged [Recovered/Resolved]
  - Pulmonary alveolar haemorrhage [Fatal]
  - Drug interaction [Fatal]
